FAERS Safety Report 7641498-5 (Version None)
Quarter: 2011Q3

REPORT INFORMATION
  Report Type: 
  Country: None (occurrence: None)
  Receive Date: 20110727
  Receipt Date: 20110727
  Transmission Date: 20111222
  Serious: Yes (Hospitalization)
  Sender: FDA-Public Use
  Company Number: None

PATIENT
  Age: 66 Year
  Sex: Male

DRUGS (7)
  1. ZYTIGA [Suspect]
     Indication: PROSTATE CANCER
     Dosage: 1000MG DAILY PO
     Route: 048
     Dates: start: 20110626
  2. TAMSULOSIN HCL [Concomitant]
  3. FUROSEMIDE [Concomitant]
  4. ZOLPIDEM [Concomitant]
  5. ATENOLOL [Concomitant]
  6. TARTRAT [Concomitant]
  7. PREDNISONE [Concomitant]

REACTIONS (2)
  - DYSPNOEA [None]
  - CARDIAC DISORDER [None]
